FAERS Safety Report 19614346 (Version 1)
Quarter: 2021Q3

REPORT INFORMATION
  Report Type: Spontaneous
  Country: US (occurrence: US)
  Receive Date: 20210727
  Receipt Date: 20210727
  Transmission Date: 20211014
  Serious: No
  Sender: FDA-Public Use
  Company Number: US-RECORDATI RARE DISEASES INC.-2020004661

PATIENT
  Sex: Female

DRUGS (1)
  1. TRANXENE [Suspect]
     Active Substance: CLORAZEPATE DIPOTASSIUM
     Indication: PRODUCT USED FOR UNKNOWN INDICATION
     Dosage: TABLETS, UNK
     Route: 065

REACTIONS (4)
  - Product substitution [Unknown]
  - Breast pain [Unknown]
  - Product availability issue [Unknown]
  - Off label use [Unknown]
